FAERS Safety Report 4289568-6 (Version None)
Quarter: 2004Q1

REPORT INFORMATION
  Report Type: 
  Country: None (occurrence: None)
  Receive Date: 20040209
  Receipt Date: 20040209
  Transmission Date: 20041129
  Serious: Yes (Other)
  Sender: FDA-Public Use
  Company Number: None

PATIENT
  Age: 57 Year
  Sex: Male
  Weight: 95.2554 kg

DRUGS (1)
  1. TETRACAINE 1% ABBOTT LABORATORIES [Suspect]
     Indication: SPINAL ANAESTHESIA
     Dosage: 18 MG INTRATHECAL
     Route: 037
     Dates: start: 20040205, end: 20040205

REACTIONS (2)
  - ANAESTHETIC COMPLICATION [None]
  - SENSORY DISTURBANCE [None]
